FAERS Safety Report 7765235-9 (Version None)
Quarter: 2011Q3

REPORT INFORMATION
  Report Type: 
  Country: None (occurrence: None)
  Receive Date: 20110921
  Receipt Date: 20110915
  Transmission Date: 20111222
  Serious: Yes (Hospitalization)
  Sender: FDA-Public Use
  Company Number: BR-GLAXOSMITHKLINE-A0945227A

PATIENT
  Sex: Female
  Weight: 90 kg

DRUGS (6)
  1. LAMICTAL [Concomitant]
     Dosage: 50MG TWICE PER DAY
     Dates: start: 20080101
  2. SERETIDE [Suspect]
     Indication: ASTHMA
     Route: 055
     Dates: start: 20090101
  3. LEVOTHYROXINE SODIUM [Concomitant]
     Dosage: 125MG IN THE MORNING
     Dates: start: 19810101
  4. FLUOXETINE [Concomitant]
     Dosage: 20MG TWICE PER DAY
  5. LIPITOR [Concomitant]
     Dosage: 10MG PER DAY
     Dates: start: 20110615, end: 20110901
  6. FENOTEROL HYDROBROMIDE + IPRATROPIUM BROMIDE [Concomitant]
     Indication: ASTHMATIC CRISIS
     Route: 055
     Dates: start: 20110720, end: 20110720

REACTIONS (7)
  - VOMITING [None]
  - PRODUCT QUALITY ISSUE [None]
  - PRURITUS GENERALISED [None]
  - ASTHMATIC CRISIS [None]
  - EYELID OEDEMA [None]
  - HYPERSENSITIVITY [None]
  - DRUG INEFFECTIVE [None]
